FAERS Safety Report 14381333 (Version 1)
Quarter: 2018Q1

REPORT INFORMATION
  Report Type: Spontaneous
  Country: US (occurrence: US)
  Receive Date: 20180111
  Receipt Date: 20180111
  Transmission Date: 20180509
  Serious: Yes (Hospitalization)
  Sender: FDA-Public Use
  Company Number: None

PATIENT
  Age: 56 Year
  Sex: Male

DRUGS (1)
  1. ATAZANAVIR SULF CAP 200MG [Suspect]
     Active Substance: ATAZANAVIR SULFATE

REACTIONS (3)
  - Injury [None]
  - Fall [None]
  - Shoulder operation [None]

NARRATIVE: CASE EVENT DATE: 20170601
